FAERS Safety Report 8328846-8 (Version None)
Quarter: 2012Q2

REPORT INFORMATION
  Report Type: 
  Country: None (occurrence: None)
  Receive Date: 20120502
  Receipt Date: 20100920
  Transmission Date: 20120825
  Serious: No
  Sender: FDA-Public Use
  Company Number: US-TEVA-2010004785

PATIENT
  Sex: Female
  Weight: 76.272 kg

DRUGS (3)
  1. MUCINEX [Suspect]
     Indication: MALAISE
     Dates: start: 20100907
  2. NUVIGIL [Suspect]
     Indication: HYPERSOMNIA
  3. NUVIGIL [Suspect]
     Indication: SLEEP APNOEA SYNDROME
     Dosage: 250 MILLIGRAM;
     Route: 048
     Dates: start: 20100829

REACTIONS (3)
  - PALPITATIONS [None]
  - MALAISE [None]
  - INSOMNIA [None]
